FAERS Safety Report 24370561 (Version 2)
Quarter: 2025Q4

REPORT INFORMATION
  Report Type: Spontaneous
  Country: EU (occurrence: EU)
  Receive Date: 20240927
  Receipt Date: 20251119
  Transmission Date: 20260118
  Serious: Yes (Other)
  Sender: BRISTOL-MYERS SQUIBB COMPANY
  Company Number: EU-BRISTOL-MYERS SQUIBB COMPANY-2024-151676

PATIENT
  Age: 80 Year
  Sex: Female

DRUGS (4)
  1. NIVOLUMAB [Suspect]
     Active Substance: NIVOLUMAB
     Indication: Malignant melanoma
  2. NIVOLUMAB [Suspect]
     Active Substance: NIVOLUMAB
     Dates: start: 20240725, end: 20240926
  3. NIVOLUMAB [Suspect]
     Active Substance: NIVOLUMAB
     Dates: start: 20241017, end: 20250827
  4. IPILIMUMAB [Suspect]
     Active Substance: IPILIMUMAB
     Indication: Malignant melanoma
     Dosage: 4 DOSES
     Dates: start: 20240725, end: 20240926

REACTIONS (13)
  - Pulmonary mass [Unknown]
  - Pulmonary fibrosis [Unknown]
  - Cholestasis [Unknown]
  - Hydrocholecystis [Unknown]
  - Cholangitis [Unknown]
  - Metastatic malignant melanoma [Unknown]
  - Fall [Unknown]
  - Haemorrhage intracranial [Unknown]
  - Metastases to central nervous system [Unknown]
  - Haemorrhagic infarction [Unknown]
  - Confusional state [Unknown]
  - Gliosis [Unknown]
  - Brain oedema [Unknown]

NARRATIVE: CASE EVENT DATE: 20240409
